FAERS Safety Report 4649794-0 (Version None)
Quarter: 2005Q2

REPORT INFORMATION
  Report Type: 
  Country: None (occurrence: None)
  Receive Date: 20050428
  Receipt Date: 20050428
  Transmission Date: 20051028
  Serious: Yes (Hospitalization)
  Sender: FDA-Public Use
  Company Number: None

PATIENT
  Age: 21 Year
  Sex: Female
  Weight: 70.3 kg

DRUGS (1)
  1. VALPROIC ACID [Suspect]
     Indication: CONVULSION
     Dosage: 1000 MG   BID  ORAL;   750 MG  NOON   ORAL
     Route: 048
     Dates: start: 20040101, end: 20050208

REACTIONS (6)
  - AZOTAEMIA [None]
  - DEHYDRATION [None]
  - DRUG LEVEL ABOVE THERAPEUTIC [None]
  - EATING DISORDER [None]
  - PANCYTOPENIA [None]
  - SOMNOLENCE [None]
